FAERS Safety Report 10070121 (Version 1)
Quarter: 2014Q2

REPORT INFORMATION
  Report Type: Report from Study
  Country: DE (occurrence: DE)
  Receive Date: 20140410
  Receipt Date: 20140410
  Transmission Date: 20141212
  Serious: Yes (Hospitalization)
  Sender: FDA-Public Use
  Company Number: DE-ABBVIE-14P-062-1220329-00

PATIENT
  Age: 39 Year
  Sex: Female
  Weight: 65 kg

DRUGS (8)
  1. HUMIRA [Suspect]
     Indication: CROHN^S DISEASE
     Route: 058
     Dates: start: 20130627, end: 201401
  2. HUMIRA [Suspect]
     Route: 058
     Dates: start: 201402, end: 201402
  3. HUMIRA [Suspect]
     Route: 058
     Dates: start: 201402
  4. TILIDINE [Concomitant]
     Indication: PAIN
  5. BUDESONIDE [Concomitant]
     Indication: PRODUCT USED FOR UNKNOWN INDICATION
  6. PERENTEROL [Concomitant]
     Indication: PRODUCT USED FOR UNKNOWN INDICATION
  7. SIMETICONE [Concomitant]
     Indication: PRODUCT USED FOR UNKNOWN INDICATION
  8. BLACK CUMIN OIL [Concomitant]
     Indication: PRODUCT USED FOR UNKNOWN INDICATION

REACTIONS (1)
  - Ileus [Recovered/Resolved]
